FAERS Safety Report 4405385-8 (Version None)
Quarter: 2004Q3

REPORT INFORMATION
  Report Type: 
  Country: None (occurrence: None)
  Receive Date: 20040720
  Receipt Date: 20040705
  Transmission Date: 20050211
  Serious: Yes (Other)
  Sender: FDA-Public Use
  Company Number: GB-JNJFOC-20040701250

PATIENT
  Sex: Male

DRUGS (1)
  1. NIZORAL [Suspect]
     Indication: DANDRUFF
     Dosage: CUTANEOUS
     Route: 003
     Dates: start: 20040527, end: 20040619

REACTIONS (2)
  - PHARYNGITIS [None]
  - RASH GENERALISED [None]
